FAERS Safety Report 7447927-4 (Version None)
Quarter: 2011Q2

REPORT INFORMATION
  Report Type: 
  Country: None (occurrence: None)
  Receive Date: 20110429
  Receipt Date: 20100317
  Transmission Date: 20111010
  Serious: No
  Sender: FDA-Public Use
  Company Number: US-ASTRAZENECA-2010SE11740

PATIENT
  Sex: Male

DRUGS (3)
  1. VITAMIN C [Concomitant]
  2. NEXIUM [Suspect]
     Route: 048
     Dates: start: 20100317
  3. NAPROXEN (ALEVE) [Concomitant]

REACTIONS (3)
  - REGURGITATION [None]
  - BOWEL MOVEMENT IRREGULARITY [None]
  - ABDOMINAL PAIN UPPER [None]
